FAERS Safety Report 18621318 (Version 2)
Quarter: 2020Q4

REPORT INFORMATION
  Report Type: Report from Study
  Country: US (occurrence: US)
  Receive Date: 20201216
  Receipt Date: 20201221
  Transmission Date: 20210114
  Serious: Yes (Hospitalization)
  Sender: FDA-Public Use
  Company Number: US-JNJFOC-20201226504

PATIENT
  Age: 19 Year
  Sex: Female
  Weight: 48.6 kg

DRUGS (3)
  1. HUMIRA [Concomitant]
     Active Substance: ADALIMUMAB
  2. INFLIXIMAB, RECOMBINANT [Suspect]
     Active Substance: INFLIXIMAB
     Indication: INFLAMMATORY BOWEL DISEASE
     Route: 042
     Dates: start: 20140911
  3. HUMIRA [Concomitant]
     Active Substance: ADALIMUMAB
     Route: 065

REACTIONS (1)
  - Inflammatory bowel disease [Recovered/Resolved]

NARRATIVE: CASE EVENT DATE: 20201015
